FAERS Safety Report 22244320 (Version 1)
Quarter: 2023Q2

REPORT INFORMATION
  Report Type: Spontaneous
  Country: US (occurrence: None)
  Receive Date: 20230422
  Receipt Date: 20230422
  Transmission Date: 20230721
  Serious: No
  Sender: FDA-Public Use
  Company Number: None

PATIENT
  Age: 57 Year
  Sex: Female
  Weight: 105.75 kg

DRUGS (1)
  1. NEUTROGENA SUNSCREEN NOS [Suspect]
     Active Substance: AVOBENZONE\HOMOSALATE\OCTISALATE\OCTOCRYLENE OR AVOBENZONE\HOMOSALATE\OCTISALATE\OCTOCRYLENE\OXYBENZ
     Indication: Prophylaxis against solar radiation
     Dosage: OTHER QUANTITY : 198 BOTTLE;?OTHER FREQUENCY : AS NEEDED;?
     Route: 061
     Dates: start: 20230421, end: 20230421

REACTIONS (2)
  - Application site pruritus [None]
  - Application site papules [None]

NARRATIVE: CASE EVENT DATE: 20230422
